FAERS Safety Report 5919305-8 (Version None)
Quarter: 2008Q4

REPORT INFORMATION
  Report Type: 
  Country: None (occurrence: None)
  Receive Date: 20081015
  Receipt Date: 20081006
  Transmission Date: 20090506
  Serious: Yes (Hospitalization, Other)
  Sender: FDA-Public Use
  Company Number: PHHY2008FR17042

PATIENT
  Sex: Female

DRUGS (12)
  1. GLEEVEC [Suspect]
     Indication: CHRONIC MYELOID LEUKAEMIA
     Dosage: 400 MG / DAILY
     Route: 048
     Dates: start: 20070101
  2. GLEEVEC [Suspect]
     Dosage: 200 MG / DAILY
     Route: 048
  3. FLUDEX [Concomitant]
  4. LOPRESSOR [Concomitant]
  5. PRAVASTATIN [Concomitant]
  6. ZANIDIP [Concomitant]
     Indication: HYPERTENSION
     Dosage: UNK
     Dates: start: 20080501
  7. KARDEGIC [Concomitant]
  8. ALLOPURINOL [Concomitant]
  9. INSULIN [Concomitant]
  10. DAONIL [Concomitant]
  11. TAREG [Concomitant]
  12. HYPERIUM [Concomitant]

REACTIONS (11)
  - BLOOD CREATININE INCREASED [None]
  - BLOOD UREA INCREASED [None]
  - DYSPNOEA [None]
  - HAEMOGLOBIN DECREASED [None]
  - HYPERTENSION [None]
  - NEPHROTIC SYNDROME [None]
  - OEDEMA [None]
  - PROTEINURIA [None]
  - RENAL FAILURE [None]
  - SCLEROEDEMA [None]
  - WEIGHT INCREASED [None]
